FAERS Safety Report 4623152-7 (Version None)
Quarter: 2005Q1

REPORT INFORMATION
  Report Type: 
  Country: None (occurrence: None)
  Receive Date: 20050330
  Receipt Date: 20050323
  Transmission Date: 20050727
  Serious: Yes (Hospitalization)
  Sender: FDA-Public Use
  Company Number: US-ABBOTT-05P-163-0294908-00

PATIENT
  Sex: Female
  Weight: 55.388 kg

DRUGS (9)
  1. TRICOR [Suspect]
     Indication: BLOOD TRIGLYCERIDES INCREASED
     Route: 048
     Dates: start: 20020101, end: 20050223
  2. TRICOR [Suspect]
     Indication: BLOOD TRIGLYCERIDES INCREASED
     Route: 048
     Dates: start: 20050223, end: 20050301
  3. AMIODARONE HYDROCHLORIDE [Concomitant]
     Indication: DRUG USE FOR UNKNOWN INDICATION
  4. DIGOXIN [Concomitant]
     Indication: DRUG USE FOR UNKNOWN INDICATION
  5. WARFARIN SODIUM [Concomitant]
     Indication: DRUG USE FOR UNKNOWN INDICATION
  6. METAXALONE [Concomitant]
     Indication: DRUG USE FOR UNKNOWN INDICATION
  7. FUROSEMIDE [Concomitant]
     Indication: DRUG USE FOR UNKNOWN INDICATION
  8. POTASSIUM CHLORIDE [Concomitant]
     Indication: DRUG USE FOR UNKNOWN INDICATION
  9. ATORVASTATIN [Concomitant]
     Indication: DRUG USE FOR UNKNOWN INDICATION
     Dates: start: 20010101

REACTIONS (2)
  - CORONARY ARTERY SURGERY [None]
  - RASH [None]
